FAERS Safety Report 25002379 (Version 2)
Quarter: 2025Q1

REPORT INFORMATION
  Report Type: Spontaneous
  Country: US (occurrence: US)
  Receive Date: 20250224
  Receipt Date: 20250317
  Transmission Date: 20250409
  Serious: Yes (Hospitalization, Other)
  Sender: BIOCODEX
  Company Number: US-BIOCODEX2-2025000137

PATIENT
  Age: 22 Year
  Sex: Male
  Weight: 105 kg

DRUGS (11)
  1. DIACOMIT [Suspect]
     Active Substance: STIRIPENTOL
     Indication: Severe myoclonic epilepsy of infancy
     Dosage: 250 MG, 500 MG, AND 500 MG BY MOUTH IN THREE SEPARATE DOSES EACH DAY
     Route: 048
     Dates: start: 2009
  2. DIACOMIT [Suspect]
     Active Substance: STIRIPENTOL
     Indication: Severe myoclonic epilepsy of infancy
     Dosage: 250 MG, 500 MG, AND 500 MG BY MOUTH IN THREE SEPARATE DOSES EACH DAY
     Route: 048
     Dates: start: 2009
  3. CLOBAZAM [Concomitant]
     Active Substance: CLOBAZAM
     Indication: Severe myoclonic epilepsy of infancy
     Dosage: 15MG NIGHTLY OF CLOBAZAM TEMPORARILY
     Route: 065
     Dates: end: 202501
  4. ATIVAN [Concomitant]
     Active Substance: LORAZEPAM
     Indication: Catatonia
     Route: 042
     Dates: start: 20250127
  5. ATIVAN [Concomitant]
     Active Substance: LORAZEPAM
     Indication: Catatonia
     Dosage: 1MG TABLET TAKE ? TABLET TWICE DAILY. MAY ALSO TAKE ? TABLET ONCE DAILY AS NEEDED.
     Route: 048
     Dates: start: 20250127
  6. COGENTIN [Concomitant]
     Active Substance: BENZTROPINE MESYLATE
     Indication: Catatonia
     Dosage: .5MG TABLET TAKE 2 TABLETS TWICE A DAY.
     Route: 048
     Dates: start: 20250127
  7. LEXAPRO [Concomitant]
     Active Substance: ESCITALOPRAM OXALATE
     Indication: Product used for unknown indication
     Route: 048
     Dates: end: 20250127
  8. LEXAPRO [Concomitant]
     Active Substance: ESCITALOPRAM OXALATE
     Indication: Product used for unknown indication
     Route: 048
     Dates: start: 20250204
  9. HUMALOG [Concomitant]
     Active Substance: INSULIN LISPRO
     Indication: Blood glucose decreased
     Route: 050
     Dates: start: 20250101
  10. LANTUS [Concomitant]
     Active Substance: INSULIN GLARGINE
     Indication: Blood glucose decreased
     Dosage: 50UNITS DAILY
     Route: 050
     Dates: start: 20250101
  11. INVEGA SUSTENNA [Concomitant]
     Active Substance: PALIPERIDONE PALMITATE
     Indication: Aggression
     Route: 050
     Dates: start: 202409, end: 20250127

REACTIONS (7)
  - Pilonidal disease [Recovered/Resolved]
  - Dysphonia [Recovered/Resolved]
  - Delirium [Recovered/Resolved]
  - Behaviour disorder [Recovered/Resolved]
  - Partial seizures [Recovered/Resolved]
  - Panic attack [Recovered/Resolved]
  - Off label use [Unknown]

NARRATIVE: CASE EVENT DATE: 20240813
